FAERS Safety Report 9026958 (Version 2)
Quarter: 2013Q2

REPORT INFORMATION
  Report Type: Spontaneous
  Country: US (occurrence: US)
  Receive Date: 20130123
  Receipt Date: 20130509
  Transmission Date: 20140414
  Serious: Yes (Hospitalization, Other)
  Sender: FDA-Public Use
  Company Number: US-BAYER-2013-007942

PATIENT
  Age: 42 Year
  Sex: Female
  Weight: 72.56 kg

DRUGS (8)
  1. BEYAZ [Suspect]
     Dosage: UNK
     Dates: start: 20101110, end: 201101
  2. ZOVIA 1/35E-21 [Suspect]
     Dosage: UNK
     Dates: start: 201101, end: 201106
  3. IBUPROFEN [Concomitant]
  4. NASOCORT [Concomitant]
     Dosage: AS NEEDED
     Dates: start: 2000
  5. ZYRTEC [Concomitant]
     Dosage: UNK
     Dates: start: 2000
  6. TRAMADOL [Concomitant]
     Dosage: 50 MG, BID
     Route: 048
     Dates: start: 20110616, end: 20110716
  7. MULTIVITAMIN [Concomitant]
  8. ALEVE [Concomitant]

REACTIONS (4)
  - Pulmonary embolism [None]
  - Injury [None]
  - Pain [None]
  - Pleurisy [None]
